FAERS Safety Report 14105138 (Version 1)
Quarter: 2017Q4

REPORT INFORMATION
  Report Type: Spontaneous
  Country: US (occurrence: US)
  Receive Date: 20171018
  Receipt Date: 20171018
  Transmission Date: 20180321
  Serious: Yes (Other)
  Sender: FDA-Public Use
  Company Number: US-ASTRAZENECA-2017SF03626

PATIENT
  Sex: Female

DRUGS (20)
  1. DENOSUMAB [Concomitant]
     Active Substance: DENOSUMAB
     Dosage: MONTHLY
     Route: 058
     Dates: start: 201704
  2. TAMOXIFEN [Suspect]
     Active Substance: TAMOXIFEN
     Route: 048
     Dates: start: 201407
  3. DOCUSATE SODIUM. [Concomitant]
     Active Substance: DOCUSATE SODIUM
     Route: 048
  4. CALCIUM [Concomitant]
     Active Substance: CALCIUM
     Route: 048
  5. CHOLECALCIFEROL [Concomitant]
     Active Substance: CHOLECALCIFEROL
     Route: 048
  6. DEXAMETHASONE. [Concomitant]
     Active Substance: DEXAMETHASONE
     Route: 048
  7. ATORVASTATIN [Concomitant]
     Active Substance: ATORVASTATIN
     Route: 048
  8. PALBOCICLIB [Suspect]
     Active Substance: PALBOCICLIB
     Dosage: TAKE 125 MG DAYS 1-21 EVERY 28 DAYS WITH FOOD
     Route: 048
     Dates: start: 201705
  9. FASLODEX [Suspect]
     Active Substance: FULVESTRANT
     Route: 030
     Dates: start: 201704
  10. SENNOSIDES. [Concomitant]
     Active Substance: SENNOSIDES
     Route: 048
  11. LOSARTAN. [Concomitant]
     Active Substance: LOSARTAN
     Route: 048
  12. COLACE [Concomitant]
     Active Substance: DOCUSATE SODIUM
  13. OMEPRAZOLE. [Suspect]
     Active Substance: OMEPRAZOLE
     Indication: GASTROOESOPHAGEAL REFLUX DISEASE
     Route: 048
  14. OMEPRAZOLE. [Suspect]
     Active Substance: OMEPRAZOLE
     Indication: GASTROOESOPHAGEAL REFLUX DISEASE
     Route: 048
  15. DEXAMETHASONE. [Concomitant]
     Active Substance: DEXAMETHASONE
     Route: 048
     Dates: start: 201705
  16. ONDANSETRON [Concomitant]
     Active Substance: ONDANSETRON
     Indication: NAUSEA
     Route: 048
  17. MAGNESIUM [Concomitant]
     Active Substance: MAGNESIUM
     Route: 048
  18. MORPHINE [Concomitant]
     Active Substance: MORPHINE
     Indication: PAIN
     Dosage: 1-2 TABLETS EVERY 4 HOURS AS NEEDED
     Route: 048
  19. POLYETHYLENE GLYCOL [Concomitant]
     Active Substance: POLYETHYLENE GLYCOLS
     Indication: CONSTIPATION
     Dosage: CONSTIPATION IF NO BOWEL MOVEMENT FOR MORE THAN 24H17.0G AS REQUIRED
     Route: 048
  20. METFORMIN [Concomitant]
     Active Substance: METFORMIN HYDROCHLORIDE
     Route: 048

REACTIONS (17)
  - Foreign body in ear [Unknown]
  - Dyspepsia [Unknown]
  - Hypertension [Unknown]
  - Hyperlipidaemia [Unknown]
  - Lymphoedema [Unknown]
  - Lung neoplasm malignant [Unknown]
  - Gastrointestinal motility disorder [Unknown]
  - Metastases to bone [Unknown]
  - Muscle spasms [Unknown]
  - Type 2 diabetes mellitus [Unknown]
  - Pain in extremity [Unknown]
  - Oropharyngeal pain [Unknown]
  - Hyperglycaemia [Unknown]
  - Myxoid cyst [Unknown]
  - Breast cancer metastatic [Unknown]
  - Breast pain [Unknown]
  - Neuropathy peripheral [Unknown]
